FAERS Safety Report 23143199 (Version 7)
Quarter: 2024Q2

REPORT INFORMATION
  Report Type: Spontaneous
  Country: GB (occurrence: GB)
  Receive Date: 20231103
  Receipt Date: 20240522
  Transmission Date: 20240716
  Serious: Yes (Hospitalization, Other)
  Sender: FDA-Public Use
  Company Number: GB-MYLANLABS-2023M1111327

PATIENT

DRUGS (11)
  1. LANSOPRAZOLE [Suspect]
     Active Substance: LANSOPRAZOLE
     Indication: Product used for unknown indication
     Dosage: UNK
     Route: 065
  2. CLOZARIL [Suspect]
     Active Substance: CLOZAPINE
     Indication: Schizophrenia
     Dosage: UNK
     Route: 048
     Dates: start: 20140619, end: 201604
  3. CLOZARIL [Suspect]
     Active Substance: CLOZAPINE
     Dosage: 500 MILLIGRAM, BID
     Route: 048
  4. CLOZARIL [Suspect]
     Active Substance: CLOZAPINE
     Dosage: UNK
     Route: 048
     Dates: start: 20240103
  5. DIAZEPAM [Suspect]
     Active Substance: DIAZEPAM
     Indication: Product used for unknown indication
     Dosage: UNK
     Route: 065
  6. DOMPERIDONE [Suspect]
     Active Substance: DOMPERIDONE
     Indication: Product used for unknown indication
     Dosage: UNK
     Route: 065
  7. FLUOXETINE [Suspect]
     Active Substance: FLUOXETINE HYDROCHLORIDE
     Indication: Product used for unknown indication
     Dosage: UNK
     Route: 065
  8. LORAZEPAM [Suspect]
     Active Substance: LORAZEPAM
     Indication: Product used for unknown indication
     Dosage: 3 MILLIGRAM, QD
     Route: 065
  9. OXYBUTYNIN [Suspect]
     Active Substance: OXYBUTYNIN\OXYBUTYNIN CHLORIDE
     Indication: Product used for unknown indication
     Dosage: UNK
     Route: 065
  10. QUETIAPINE [Suspect]
     Active Substance: QUETIAPINE
     Indication: Product used for unknown indication
     Dosage: UNK
     Route: 065
     Dates: end: 20231013
  11. VALPROIC ACID [Concomitant]
     Active Substance: VALPROIC ACID
     Dosage: UNK

REACTIONS (20)
  - Hospitalisation [Unknown]
  - Delirium [Unknown]
  - Respiratory arrest [Unknown]
  - Neutropenia [Recovered/Resolved]
  - Seizure [Unknown]
  - Urinary tract infection [Unknown]
  - Off label use [Unknown]
  - Malaise [Unknown]
  - Dizziness [Unknown]
  - Influenza like illness [Unknown]
  - White blood cell count decreased [Recovered/Resolved]
  - Mental disorder [Unknown]
  - Sedation [Unknown]
  - Salivary hypersecretion [Unknown]
  - Hypotension [Unknown]
  - Ataxia [Unknown]
  - Infection [Unknown]
  - Eosinophil count decreased [Recovered/Resolved]
  - Weight increased [Unknown]
  - Peripheral swelling [Unknown]

NARRATIVE: CASE EVENT DATE: 20240405
